FAERS Safety Report 4697777-7 (Version None)
Quarter: 2005Q2

REPORT INFORMATION
  Report Type: 
  Country: None (occurrence: None)
  Receive Date: 20050621
  Receipt Date: 20050608
  Transmission Date: 20051028
  Serious: No
  Sender: FDA-Public Use
  Company Number: TPA2005A00656

PATIENT
  Age: 42 Year
  Sex: Female
  Weight: 55.3388 kg

DRUGS (1)
  1. ACTOS [Suspect]
     Indication: HYPERGLYCAEMIA
     Dosage: 15 MG, 1 IN 1 D, PER ORAL
     Route: 048
     Dates: start: 20050405, end: 20050425

REACTIONS (3)
  - DIZZINESS [None]
  - POOR QUALITY DRUG ADMINISTERED [None]
  - RESTLESSNESS [None]
